FAERS Safety Report 10306193 (Version 1)
Quarter: 2014Q3

REPORT INFORMATION
  Report Type: Spontaneous
  Country: IT (occurrence: IT)
  Receive Date: 20140715
  Receipt Date: 20140715
  Transmission Date: 20150326
  Serious: Yes (Hospitalization)
  Sender: FDA-Public Use
  Company Number: IT-BAYER-2014-101248

PATIENT
  Age: 0 Day
  Sex: Male
  Weight: 2 kg

DRUGS (2)
  1. ADALAT CRONO [Suspect]
     Active Substance: NIFEDIPINE
     Indication: GESTATIONAL HYPERTENSION
     Dosage: UNK
     Route: 064
     Dates: start: 20121101, end: 20130308
  2. CARDIOASPIRIN [Suspect]
     Active Substance: ASPIRIN
     Indication: GESTATIONAL HYPERTENSION
     Dosage: UNK
     Route: 064
     Dates: start: 20121001, end: 20130308

REACTIONS (2)
  - Premature baby [Recovered/Resolved]
  - Neonatal respiratory distress syndrome [Recovered/Resolved]

NARRATIVE: CASE EVENT DATE: 20130308
